FAERS Safety Report 12933018 (Version 1)
Quarter: 2016Q4

REPORT INFORMATION
  Report Type: Spontaneous
  Country: US (occurrence: US)
  Receive Date: 20161111
  Receipt Date: 20161111
  Transmission Date: 20170207
  Serious: Yes (Hospitalization)
  Sender: FDA-Public Use
  Company Number: US-PFIZER INC-2016521839

PATIENT
  Age: 39 Year
  Sex: Male
  Weight: 93 kg

DRUGS (5)
  1. AZITHROMYCIN ANHYDROUS. [Suspect]
     Active Substance: AZITHROMYCIN ANHYDROUS
     Indication: OROPHARYNGEAL PAIN
     Dosage: UNK
  2. ASPIRIN /00002701/ [Concomitant]
     Active Substance: ASPIRIN
     Dosage: 81 MG, UNK
  3. PRILOSEC [Concomitant]
     Active Substance: OMEPRAZOLE MAGNESIUM
     Dosage: 20 MG, UNK
  4. BENICAR [Suspect]
     Active Substance: OLMESARTAN MEDOXOMIL
     Indication: HYPERTENSION
     Dosage: 20 MG, UNK
  5. BENICAR HCT [Suspect]
     Active Substance: HYDROCHLOROTHIAZIDE\OLMESARTAN MEDOXOMIL
     Indication: HYPERTENSION
     Dosage: 20/12.5 MG, DAILY
     Route: 048
     Dates: start: 2009, end: 2014

REACTIONS (9)
  - Helicobacter test positive [Unknown]
  - Syncope [Unknown]
  - Haemorrhoids [Unknown]
  - Liver function test increased [Unknown]
  - Vitamin D decreased [Not Recovered/Not Resolved]
  - Sinusitis [Unknown]
  - Leukocytosis [Unknown]
  - Diverticulum [Not Recovered/Not Resolved]
  - Irritable bowel syndrome [Not Recovered/Not Resolved]

NARRATIVE: CASE EVENT DATE: 20090526
